FAERS Safety Report 21848776 (Version 2)
Quarter: 2023Q1

REPORT INFORMATION
  Report Type: Spontaneous
  Country: US (occurrence: US)
  Receive Date: 20230111
  Receipt Date: 20230118
  Transmission Date: 20230417
  Serious: No
  Sender: FDA-Public Use
  Company Number: US-002147023-NVSC2023US004844

PATIENT
  Age: 82 Year
  Sex: Female

DRUGS (15)
  1. AZITHROMYCIN [Suspect]
     Active Substance: AZITHROMYCIN
     Indication: Mycobacterial infection
     Dosage: 500 MG
     Route: 065
     Dates: start: 201905
  2. AZITHROMYCIN [Suspect]
     Active Substance: AZITHROMYCIN
     Dosage: 500 MG
     Route: 065
     Dates: start: 201906, end: 201909
  3. AZITHROMYCIN [Suspect]
     Active Substance: AZITHROMYCIN
     Dosage: 500 MG
     Route: 065
     Dates: start: 20191216, end: 20210312
  4. AZITHROMYCIN [Suspect]
     Active Substance: AZITHROMYCIN
     Dosage: 500 MG
     Route: 065
     Dates: start: 20210503, end: 20220818
  5. AZITHROMYCIN [Suspect]
     Active Substance: AZITHROMYCIN
     Dosage: 500 MG
     Route: 065
     Dates: start: 20221108
  6. ETHAMBUTOL [Suspect]
     Active Substance: ETHAMBUTOL HYDROCHLORIDE
     Indication: Mycobacterial infection
     Dosage: 1200 MG
     Route: 065
     Dates: start: 201905
  7. ETHAMBUTOL [Suspect]
     Active Substance: ETHAMBUTOL HYDROCHLORIDE
     Dosage: 1200 MG
     Route: 065
     Dates: start: 201906, end: 201909
  8. ETHAMBUTOL [Suspect]
     Active Substance: ETHAMBUTOL HYDROCHLORIDE
     Dosage: 1200 MG
     Route: 065
     Dates: start: 20191216, end: 20210312
  9. ETHAMBUTOL [Suspect]
     Active Substance: ETHAMBUTOL HYDROCHLORIDE
     Dosage: 1200 MG
     Route: 065
     Dates: start: 20210503, end: 20220818
  10. ETHAMBUTOL [Suspect]
     Active Substance: ETHAMBUTOL HYDROCHLORIDE
     Dosage: 1200 MG
     Route: 065
     Dates: start: 20221108
  11. RIFAMPIN [Suspect]
     Active Substance: RIFAMPIN
     Indication: Mycobacterial infection
     Dosage: 600 MG
     Route: 065
     Dates: start: 201905
  12. RIFAMPIN [Suspect]
     Active Substance: RIFAMPIN
     Dosage: 600 MG
     Route: 065
     Dates: start: 201906, end: 201909
  13. RIFAMPIN [Suspect]
     Active Substance: RIFAMPIN
     Dosage: 600 MG
     Route: 065
     Dates: start: 20191216, end: 20210312
  14. RIFAMPIN [Suspect]
     Active Substance: RIFAMPIN
     Dosage: 600 MG
     Route: 065
     Dates: start: 20210503, end: 20220818
  15. RIFAMPIN [Suspect]
     Active Substance: RIFAMPIN
     Dosage: 600 MG
     Route: 065
     Dates: start: 20221108

REACTIONS (8)
  - Weight decreased [Recovering/Resolving]
  - Cough [Not Recovered/Not Resolved]
  - Abdominal discomfort [Recovering/Resolving]
  - Eructation [Recovering/Resolving]
  - Fatigue [Not Recovered/Not Resolved]
  - Dyspnoea [Not Recovered/Not Resolved]
  - Nausea [Recovering/Resolving]
  - Vomiting [Recovering/Resolving]
